FAERS Safety Report 5140264-2 (Version None)
Quarter: 2006Q4

REPORT INFORMATION
  Report Type: 
  Country: None (occurrence: None)
  Receive Date: 20061031
  Receipt Date: 20061025
  Transmission Date: 20070319
  Serious: Yes (Hospitalization)
  Sender: FDA-Public Use
  Company Number: US-AVENTIS-200621140GDDC

PATIENT
  Sex: Male
  Weight: 77.4 kg

DRUGS (3)
  1. TAXOTERE [Suspect]
     Indication: NEOPLASM MALIGNANT
     Route: 042
     Dates: start: 20061012, end: 20061012
  2. CETUXIMAB [Suspect]
     Indication: NEOPLASM MALIGNANT
     Route: 042
     Dates: start: 20061012, end: 20061012
  3. RADIATION THERAPY [Suspect]
     Indication: NEOPLASM MALIGNANT
     Dosage: DOSE: 60 GY (2GY/DAY)EXTERNAL BEAM, IMRT (4200 CGY TOTAL DOSE TO DATE)
     Dates: start: 20061012, end: 20061012

REACTIONS (3)
  - BLOOD SODIUM DECREASED [None]
  - DEHYDRATION [None]
  - MUCOSAL INFLAMMATION [None]
